FAERS Safety Report 13990118 (Version 2)
Quarter: 2017Q3

REPORT INFORMATION
  Report Type: Report from Study
  Country: None (occurrence: US)
  Receive Date: 20170920
  Receipt Date: 20170922
  Transmission Date: 20171128
  Serious: Yes (Other)
  Sender: FDA-Public Use
  Company Number: US-ABBVIE-16K-163-1779950-00

PATIENT
  Age: 61 Year
  Sex: Male

DRUGS (2)
  1. HUMIRA [Suspect]
     Active Substance: ADALIMUMAB
     Indication: RHEUMATOID ARTHRITIS
     Route: 058
     Dates: start: 20160801
  2. RASUVO [Concomitant]
     Active Substance: METHOTREXATE SODIUM
     Indication: PRODUCT USED FOR UNKNOWN INDICATION

REACTIONS (11)
  - Anxiety [Unknown]
  - Hypoaesthesia [Not Recovered/Not Resolved]
  - Rheumatoid arthritis [Recovered/Resolved]
  - Burning sensation [Unknown]
  - Pain [Recovered/Resolved]
  - Loss of personal independence in daily activities [Unknown]
  - Joint range of motion decreased [Unknown]
  - Musculoskeletal pain [Unknown]
  - Glaucoma [Unknown]
  - Fatigue [Unknown]
  - Pain [Unknown]

NARRATIVE: CASE EVENT DATE: 2016
